FAERS Safety Report 25806776 (Version 1)
Quarter: 2025Q3

REPORT INFORMATION
  Report Type: Spontaneous
  Country: RU (occurrence: RU)
  Receive Date: 20250916
  Receipt Date: 20250916
  Transmission Date: 20251021
  Serious: Yes (Other)
  Sender: ANI
  Company Number: RU-ANIPHARMA-2025-RU-000024

PATIENT
  Sex: Female

DRUGS (3)
  1. ARIMIDEX [Suspect]
     Active Substance: ANASTROZOLE
     Indication: Product used for unknown indication
  2. GOSERELIN [Concomitant]
     Active Substance: GOSERELIN
  3. ABEMACICLIB [Concomitant]
     Active Substance: ABEMACICLIB

REACTIONS (2)
  - Neutropenia [Not Recovered/Not Resolved]
  - Feeling abnormal [Not Recovered/Not Resolved]
